FAERS Safety Report 6105076-1 (Version None)
Quarter: 2009Q1

REPORT INFORMATION
  Report Type: 
  Country: None (occurrence: None)
  Receive Date: 20090306
  Receipt Date: 20090220
  Transmission Date: 20090719
  Serious: Yes (Death, Other)
  Sender: FDA-Public Use
  Company Number: US-BAYER-200813818NA

PATIENT
  Age: 56 Year
  Sex: Male
  Weight: 73 kg

DRUGS (23)
  1. MAGNEVIST [Suspect]
     Indication: NUCLEAR MAGNETIC RESONANCE IMAGING
  2. OMNISCAN [Suspect]
     Indication: NUCLEAR MAGNETIC RESONANCE IMAGING
  3. PROHANCE [Suspect]
     Indication: NUCLEAR MAGNETIC RESONANCE IMAGING
  4. EPOGEN [Concomitant]
     Dates: start: 20050912
  5. FERRLECIT [Concomitant]
     Dates: start: 20050912
  6. ZEMPLAR [Concomitant]
     Dates: start: 20050912
  7. LISINOPRIL [Concomitant]
     Dates: start: 20050912
  8. EFFEXOR [Concomitant]
     Dates: start: 20050912, end: 20060127
  9. EFFEXOR [Concomitant]
     Dates: start: 20060127
  10. EFFEXOR [Concomitant]
     Dates: start: 20060127
  11. ^DIATX ZN^ [Concomitant]
  12. RENAGEL [Concomitant]
     Dates: start: 20060127
  13. RENAGEL [Concomitant]
     Dates: start: 20050912, end: 20060127
  14. PHOSLO [Concomitant]
     Dates: start: 20050912
  15. RESTORIL [Concomitant]
     Dates: start: 20050912
  16. ASPIRIN [Concomitant]
     Dates: start: 20060127
  17. ASPIRIN [Concomitant]
     Dates: start: 20050912, end: 20060127
  18. PLAVIX [Concomitant]
     Dates: start: 20060127
  19. LOPRESSOR [Concomitant]
     Dates: start: 20060127
  20. ZOCOR [Concomitant]
     Dates: start: 20060127
  21. NITROGLYCERIN [Concomitant]
     Indication: CHEST PAIN
     Dates: start: 20060127
  22. PREDNISONE [Concomitant]
  23. THALIDOMIDE [Concomitant]
     Dates: end: 20060127

REACTIONS (10)
  - ANXIETY [None]
  - DRY SKIN [None]
  - EMOTIONAL DISTRESS [None]
  - FIBROSIS TENDINOUS [None]
  - GAIT DISTURBANCE [None]
  - INJURY [None]
  - JOINT STIFFNESS [None]
  - NEPHROGENIC SYSTEMIC FIBROSIS [None]
  - PAIN [None]
  - SKIN EXFOLIATION [None]
